FAERS Safety Report 14728480 (Version 3)
Quarter: 2018Q3

REPORT INFORMATION
  Report Type: Report from Study
  Country: US (occurrence: US)
  Receive Date: 20180406
  Receipt Date: 20180815
  Transmission Date: 20181010
  Serious: Yes (Other)
  Sender: FDA-Public Use
  Company Number: US-BAYER-2018-048741

PATIENT
  Age: 47 Year
  Sex: Female

DRUGS (12)
  1. MIRTAZAPINE. [Concomitant]
     Active Substance: MIRTAZAPINE
  2. LONSURF [Concomitant]
     Active Substance: TIPIRACIL HYDROCHLORIDE\TRIFLURIDINE
  3. STIVARGA [Suspect]
     Active Substance: REGORAFENIB
     Indication: COLON CANCER
     Dosage: 120 MG, DAILY
     Route: 048
     Dates: start: 20180308, end: 20180311
  4. CASTOR OIL. [Concomitant]
     Active Substance: CASTOR OIL
  5. DEXAMETHASONE. [Concomitant]
     Active Substance: DEXAMETHASONE
     Dosage: UNK
  6. GENISTEIN [Concomitant]
     Active Substance: GENISTEIN
  7. STIVARGA [Suspect]
     Active Substance: REGORAFENIB
     Indication: COLON CANCER METASTATIC
     Dosage: 80 MG, DAILY
     Route: 048
     Dates: start: 20180312, end: 20180324
  8. STIVARGA [Suspect]
     Active Substance: REGORAFENIB
     Indication: METASTASES TO LUNG
  9. HYDROMORPHONE HYDROCHLORIDE. [Concomitant]
     Active Substance: HYDROMORPHONE HYDROCHLORIDE
  10. MITOMYCIN. [Concomitant]
     Active Substance: MITOMYCIN
  11. DALTEPARIN SODIUM [Concomitant]
     Active Substance: DALTEPARIN SODIUM
  12. MELATONIN [Concomitant]
     Active Substance: MELATONIN

REACTIONS (17)
  - Nausea [Not Recovered/Not Resolved]
  - Off label use [None]
  - Cyst [Recovering/Resolving]
  - Disturbance in attention [None]
  - Amnesia [None]
  - Nausea [None]
  - Dyspepsia [Not Recovered/Not Resolved]
  - Paraesthesia [None]
  - Libido decreased [None]
  - Cognitive disorder [None]
  - Constipation [None]
  - Intentional product misuse [None]
  - Abnormal loss of weight [None]
  - Ovarian neoplasm [None]
  - Gastric ulcer [None]
  - Insomnia [None]
  - Abdominal pain upper [None]

NARRATIVE: CASE EVENT DATE: 2018
